FAERS Safety Report 6522165-8 (Version None)
Quarter: 2009Q4

REPORT INFORMATION
  Report Type: 
  Country: None (occurrence: None)
  Receive Date: 20091224
  Receipt Date: 20091219
  Transmission Date: 20100525
  Serious: Yes (Death)
  Sender: FDA-Public Use
  Company Number: PERC20090163

PATIENT
  Age: 19 Year
  Sex: Male

DRUGS (4)
  1. PERCOCET [Suspect]
     Indication: DRUG ABUSER
  2. OXYCONTIN [Suspect]
     Indication: DRUG ABUSER
  3. XANAX [Suspect]
     Indication: DRUG ABUSER
  4. ALCOHOL (ETHANOL) [Suspect]
     Indication: ALCOHOL ABUSE

REACTIONS (4)
  - ALCOHOL USE [None]
  - INTENTIONAL DRUG MISUSE [None]
  - MULTI-ORGAN DISORDER [None]
  - OVERDOSE [None]
